FAERS Safety Report 19650739 (Version 3)
Quarter: 2021Q4

REPORT INFORMATION
  Report Type: Spontaneous
  Country: US (occurrence: US)
  Receive Date: 20210803
  Receipt Date: 20211006
  Transmission Date: 20220303
  Serious: Yes (Other)
  Sender: FDA-Public Use
  Company Number: US-ROCHE-2877112

PATIENT
  Age: 66 Year
  Sex: Female

DRUGS (5)
  1. PROLIA [Suspect]
     Active Substance: DENOSUMAB
     Indication: Osteoporosis postmenopausal
     Route: 058
     Dates: start: 20210618
  2. ALLEGRA [Concomitant]
     Active Substance: FEXOFENADINE HYDROCHLORIDE
  3. ZOLOFT [Concomitant]
     Active Substance: SERTRALINE HYDROCHLORIDE
  4. BUSPAR [Concomitant]
     Active Substance: BUSPIRONE HYDROCHLORIDE
  5. TYLENOL [Concomitant]
     Active Substance: ACETAMINOPHEN

REACTIONS (22)
  - Road traffic accident [Unknown]
  - Drug ineffective [Unknown]
  - Pain in extremity [Recovering/Resolving]
  - Non-cardiac chest pain [Unknown]
  - Disturbance in attention [Unknown]
  - Cough [Unknown]
  - Spinal pain [Unknown]
  - Contusion [Unknown]
  - Oropharyngeal pain [Unknown]
  - Pain [Unknown]
  - Anxiety [Unknown]
  - Arthralgia [Unknown]
  - Back pain [Not Recovered/Not Resolved]
  - Abdominal discomfort [Recovering/Resolving]
  - Medial tibial stress syndrome [Recovering/Resolving]
  - Hypoaesthesia [Unknown]
  - Dysphagia [Unknown]
  - Mental disorder [Unknown]
  - Musculoskeletal chest pain [Unknown]
  - Muscle disorder [Unknown]
  - Product storage error [Unknown]
  - Gastrooesophageal reflux disease [Unknown]
